FAERS Safety Report 7777102-5 (Version None)
Quarter: 2011Q3

REPORT INFORMATION
  Report Type: 
  Country: None (occurrence: None)
  Receive Date: 20110926
  Receipt Date: 20110204
  Transmission Date: 20111222
  Serious: Yes (Other)
  Sender: FDA-Public Use
  Company Number: RO-UCBSA-040100

PATIENT
  Age: 42 Year
  Sex: Female

DRUGS (1)
  1. NEUPRO [Suspect]
     Dosage: DRUG EXPOSURE VIA SEMEN

REACTIONS (2)
  - MATERNAL EXPOSURE BEFORE PREGNANCY [None]
  - ABORTION SPONTANEOUS [None]
